APPROVED DRUG PRODUCT: BETAMETHASONE VALERATE
Active Ingredient: BETAMETHASONE VALERATE
Strength: EQ 0.1% BASE
Dosage Form/Route: CREAM;TOPICAL
Application: A070062 | Product #001
Applicant: SUN PHARMA CANADA INC
Approved: May 14, 1985 | RLD: No | RS: No | Type: DISCN